FAERS Safety Report 6717050-2 (Version None)
Quarter: 2010Q2

REPORT INFORMATION
  Report Type: 
  Country: None (occurrence: None)
  Receive Date: 20100510
  Receipt Date: 20100408
  Transmission Date: 20101027
  Serious: No
  Sender: FDA-Public Use
  Company Number: US-BAYER-201014128BCC

PATIENT
  Age: 41 Year
  Sex: Female
  Weight: 102 kg

DRUGS (1)
  1. MIDOL [Suspect]
     Indication: MUSCLE SPASMS
     Route: 048
     Dates: start: 20100201

REACTIONS (3)
  - DEHYDRATION [None]
  - EUPHORIC MOOD [None]
  - FEELING OF RELAXATION [None]
